FAERS Safety Report 16967324 (Version 1)
Quarter: 2019Q4

REPORT INFORMATION
  Report Type: Spontaneous
  Country: US (occurrence: US)
  Receive Date: 20190910
  Receipt Date: 20190910
  Transmission Date: 20200122
  Serious: Yes (Hospitalization)
  Sender: FDA-Public Use
  Company Number: None

PATIENT
  Age: 67 Year
  Sex: Male
  Weight: 86.64 kg

DRUGS (3)
  1. RIVAROXABAN [Suspect]
     Active Substance: RIVAROXABAN
     Indication: ATRIAL FIBRILLATION
     Dates: start: 20181220, end: 20190122
  2. RIVAROXABAN [Suspect]
     Active Substance: RIVAROXABAN
     Indication: MITRAL VALVE REPLACEMENT
     Dates: start: 20181220, end: 20190122
  3. ASPIRIN. [Suspect]
     Active Substance: ASPIRIN
     Indication: CORONARY ARTERIAL STENT INSERTION
     Dates: start: 20180517, end: 20190122

REACTIONS (2)
  - Haemorrhage [None]
  - Acute kidney injury [None]

NARRATIVE: CASE EVENT DATE: 20190122
